FAERS Safety Report 4918194-8 (Version None)
Quarter: 2006Q1

REPORT INFORMATION
  Report Type: 
  Country: None (occurrence: None)
  Receive Date: 20060215
  Receipt Date: 20060202
  Transmission Date: 20060701
  Serious: Yes (Hospitalization)
  Sender: FDA-Public Use
  Company Number: 2006RR-01593

PATIENT
  Age: 34 Year
  Sex: Male

DRUGS (2)
  1. FLUOXETINE [Suspect]
     Indication: DEPRESSION
     Dosage: 40 MG, QD, ORAL
     Route: 048
     Dates: start: 20010501, end: 20011201
  2. ACETAMINOPHEN [Concomitant]

REACTIONS (1)
  - DYSKINESIA [None]
